FAERS Safety Report 4977217-0 (Version None)
Quarter: 2006Q2

REPORT INFORMATION
  Report Type: 
  Country: None (occurrence: None)
  Receive Date: 20060419
  Receipt Date: 20050906
  Transmission Date: 20061013
  Serious: Yes (Hospitalization, Other)
  Sender: FDA-Public Use
  Company Number: US-MERCK-0509USA00740

PATIENT
  Age: 73 Year
  Sex: Female

DRUGS (3)
  1. VIOXX [Suspect]
     Indication: OSTEOARTHRITIS
     Route: 048
     Dates: start: 20010412, end: 20010416
  2. VIOXX [Suspect]
     Route: 048
     Dates: start: 20010417, end: 20010421
  3. LEVOXYL [Concomitant]
     Route: 065

REACTIONS (27)
  - ARRHYTHMIA [None]
  - BLINDNESS UNILATERAL [None]
  - CARTILAGE INJURY [None]
  - CATARACT [None]
  - CEREBROVASCULAR ACCIDENT [None]
  - DIZZINESS [None]
  - ELECTROCARDIOGRAM QT PROLONGED [None]
  - GLOSSODYNIA [None]
  - HEADACHE [None]
  - HYPERSENSITIVITY [None]
  - INJURY [None]
  - ISCHAEMIA [None]
  - JOINT INJURY [None]
  - JOINT LOCK [None]
  - LEUKOCYTOSIS [None]
  - MITRAL VALVE PROLAPSE [None]
  - NERVOUS SYSTEM DISORDER [None]
  - OPTIC ISCHAEMIC NEUROPATHY [None]
  - OPTIC NEURITIS [None]
  - PAIN IN JAW [None]
  - SCLERAL DISCOLOURATION [None]
  - SCOTOMA [None]
  - SUBDURAL HAEMATOMA [None]
  - TEMPORAL ARTERITIS [None]
  - TEMPOROMANDIBULAR JOINT SYNDROME [None]
  - THROMBOCYTHAEMIA [None]
  - VISION BLURRED [None]
